FAERS Safety Report 20549670 (Version 5)
Quarter: 2022Q4

REPORT INFORMATION
  Report Type: Report from Study
  Country: CA (occurrence: CA)
  Receive Date: 20220304
  Receipt Date: 20221202
  Transmission Date: 20230112
  Serious: Yes (Other)
  Sender: FDA-Public Use
  Company Number: CA-BEH-2022142867

PATIENT
  Age: 9 Year
  Sex: Male
  Weight: 39.5 kg

DRUGS (6)
  1. HIZENTRA [Suspect]
     Active Substance: HUMAN IMMUNOGLOBULIN G
     Indication: Secondary immunodeficiency
     Dosage: 4 GRAM, QW
     Route: 058
     Dates: start: 20210324, end: 2022
  2. HIZENTRA [Suspect]
     Active Substance: HUMAN IMMUNOGLOBULIN G
     Dosage: 4 GRAM, QW
     Route: 065
     Dates: start: 2022
  3. MYCOPHENOLIC ACID [Concomitant]
     Active Substance: MYCOPHENOLIC ACID
  4. VITAMIN D2 [Concomitant]
     Active Substance: ERGOCALCIFEROL
  5. LANADELUMAB [Concomitant]
     Active Substance: LANADELUMAB
     Dosage: UNK
     Dates: start: 2022
  6. RITUXIMAB [Concomitant]
     Active Substance: RITUXIMAB
     Dosage: UNK
     Dates: start: 202209

REACTIONS (8)
  - Renal disorder [Unknown]
  - Eye swelling [Unknown]
  - No adverse event [Unknown]
  - Therapy interrupted [Unknown]
  - Renal disorder [Unknown]
  - White blood cell count decreased [Unknown]
  - Influenza [Unknown]
  - Injection site pain [Unknown]

NARRATIVE: CASE EVENT DATE: 20220101
